FAERS Safety Report 6056118-3 (Version None)
Quarter: 2009Q1

REPORT INFORMATION
  Report Type: 
  Country: None (occurrence: None)
  Receive Date: 20090128
  Receipt Date: 20090116
  Transmission Date: 20090719
  Serious: No
  Sender: FDA-Public Use
  Company Number: US-ELI_LILLY_AND_COMPANY-US200901002721

PATIENT
  Sex: Female

DRUGS (7)
  1. CYMBALTA [Suspect]
     Indication: DEPRESSION
     Dosage: 30 MG, UNK
     Route: 048
     Dates: start: 20080101, end: 20080101
  2. CYMBALTA [Suspect]
     Dosage: 30 MG, DAILY (1/D)
     Route: 048
     Dates: start: 20080101, end: 20080101
  3. CYMBALTA [Suspect]
     Dosage: 60 MG, DAILY (1/D)
     Route: 048
     Dates: start: 20080101, end: 20090101
  4. MULTI-VITAMINS [Concomitant]
  5. VITAMIN B-12 [Concomitant]
  6. FERROUS SULFATE TAB [Concomitant]
  7. VITAMIN B6 [Concomitant]

REACTIONS (8)
  - DRUG INEFFECTIVE [None]
  - EYE DISORDER [None]
  - NAUSEA [None]
  - POLLAKIURIA [None]
  - PRURITUS [None]
  - RASH MACULAR [None]
  - SKIN DISORDER [None]
  - URINE COLOUR ABNORMAL [None]
